FAERS Safety Report 18546668 (Version 1)
Quarter: 2020Q4

REPORT INFORMATION
  Report Type: Spontaneous
  Country: FR (occurrence: FR)
  Receive Date: 20201125
  Receipt Date: 20201125
  Transmission Date: 20210114
  Serious: Yes (Other)
  Sender: FDA-Public Use
  Company Number: FR-HIKMA PHARMACEUTICALS USA INC.-FR-H14001-20-52644

PATIENT
  Age: 8 Year
  Sex: Male
  Weight: 39 kg

DRUGS (1)
  1. VANCOMYCINE [Suspect]
     Active Substance: VANCOMYCIN
     Indication: ACUTE RESPIRATORY DISTRESS SYNDROME
     Route: 042
     Dates: start: 20200305, end: 20200305

REACTIONS (2)
  - Extravasation [Recovered/Resolved]
  - Dermo-hypodermitis [Recovered/Resolved]

NARRATIVE: CASE EVENT DATE: 20200305
